FAERS Safety Report 13538364 (Version 1)
Quarter: 2017Q2

REPORT INFORMATION
  Report Type: Spontaneous
  Country: BE (occurrence: BE)
  Receive Date: 20170512
  Receipt Date: 20170512
  Transmission Date: 20170830
  Serious: Yes (Hospitalization)
  Sender: FDA-Public Use
  Company Number: BE-ASTRAZENECA-2017SE49374

PATIENT
  Sex: Male

DRUGS (3)
  1. GLUCOPHAGE [Interacting]
     Active Substance: METFORMIN HYDROCHLORIDE
     Route: 065
  2. BYDUREON [Suspect]
     Active Substance: EXENATIDE
     Route: 065
     Dates: end: 20170422
  3. UNI DIAMICRON [Concomitant]
     Active Substance: GLICLAZIDE

REACTIONS (3)
  - Drug interaction [Unknown]
  - Feeding disorder [Unknown]
  - Vomiting [Unknown]
